FAERS Safety Report 21769243 (Version 1)
Quarter: 2022Q4

REPORT INFORMATION
  Report Type: Report from Study
  Country: US (occurrence: US)
  Receive Date: 20221223
  Receipt Date: 20221223
  Transmission Date: 20230113
  Serious: No
  Sender: FDA-Public Use
  Company Number: US-ACADIA PHARMACEUTICALS INC.-ACA-2022-PIM-004169

PATIENT
  Age: 71 Year
  Sex: Male

DRUGS (15)
  1. NUPLAZID [Suspect]
     Active Substance: PIMAVANSERIN TARTRATE
     Indication: Parkinson^s disease psychosis
     Dosage: 34 MILLIGRAM, QD
     Route: 065
     Dates: end: 20221210
  2. CARBIDOPA\LEVODOPA [Concomitant]
     Active Substance: CARBIDOPA\LEVODOPA
  3. COMTAN [Concomitant]
     Active Substance: ENTACAPONE
  4. METFORMIN [Concomitant]
     Active Substance: METFORMIN HYDROCHLORIDE
  5. LIPITOR [Concomitant]
     Active Substance: ATORVASTATIN CALCIUM
  6. LOVASTATIN [Concomitant]
     Active Substance: LOVASTATIN
  7. AMBIEN [Concomitant]
     Active Substance: ZOLPIDEM TARTRATE
  8. VICODIN [Concomitant]
     Active Substance: ACETAMINOPHEN\HYDROCODONE BITARTRATE
  9. BACLOFEN [Concomitant]
     Active Substance: BACLOFEN
  10. GABAPENTIN [Concomitant]
     Active Substance: GABAPENTIN
  11. CELEBREX [Concomitant]
     Active Substance: CELECOXIB
  12. ASPIRIN [Concomitant]
     Active Substance: ASPIRIN
  13. AMITIZA [Concomitant]
     Active Substance: LUBIPROSTONE
  14. LINZESS [Concomitant]
     Active Substance: LINACLOTIDE
  15. PEPCID [Concomitant]
     Active Substance: FAMOTIDINE

REACTIONS (3)
  - Paranoia [Unknown]
  - Agitation [Unknown]
  - Drug ineffective [Not Recovered/Not Resolved]

NARRATIVE: CASE EVENT DATE: 20221201
